FAERS Safety Report 17565880 (Version 1)
Quarter: 2020Q1

REPORT INFORMATION
  Report Type: Spontaneous
  Country: US (occurrence: US)
  Receive Date: 20200320
  Receipt Date: 20200320
  Transmission Date: 20200409
  Serious: No
  Sender: FDA-Public Use
  Company Number: US-ALKERMES INC.-ALK-2020-000893

PATIENT
  Age: 27 Year
  Sex: Female
  Weight: 52.15 kg

DRUGS (5)
  1. VIVITROL [Suspect]
     Active Substance: NALTREXONE
     Indication: DRUG DEPENDENCE
     Dosage: 380 MG, QMO
     Route: 030
     Dates: start: 20200303, end: 20200303
  2. VIVITROL [Suspect]
     Active Substance: NALTREXONE
     Indication: INJECTION SITE ERYTHEMA
     Dosage: 380 MG, QMO
     Route: 030
     Dates: start: 20200106, end: 20200106
  3. VIVITROL [Suspect]
     Active Substance: NALTREXONE
     Indication: INJECTION SITE INDURATION
  4. VIVITROL [Suspect]
     Active Substance: NALTREXONE
     Indication: ALCOHOLISM
     Dosage: 380 MG, QMO
     Route: 030
     Dates: start: 20200204, end: 20200204
  5. FLUOXETINE [Concomitant]
     Active Substance: FLUOXETINE HYDROCHLORIDE
     Indication: PRODUCT USED FOR UNKNOWN INDICATION
     Dosage: 90 MG, UNK

REACTIONS (5)
  - Lack of injection site rotation [Recovered/Resolved]
  - Injection site reaction [Recovered/Resolved]
  - Injection site erythema [Recovered/Resolved]
  - Injection site pain [Recovered/Resolved]
  - Injection site induration [Recovered/Resolved]

NARRATIVE: CASE EVENT DATE: 202002
